FAERS Safety Report 10915091 (Version 1)
Quarter: 2015Q1

REPORT INFORMATION
  Report Type: Spontaneous
  Country: US (occurrence: US)
  Receive Date: 20150315
  Receipt Date: 20150315
  Transmission Date: 20150721
  Serious: Yes (Hospitalization)
  Sender: FDA-Public Use
  Company Number: US-ELI_LILLY_AND_COMPANY-US201503000975

PATIENT
  Age: 44 Year
  Sex: Female
  Weight: 73 kg

DRUGS (10)
  1. PERCOCET [Suspect]
     Active Substance: ACETAMINOPHEN\OXYCODONE HYDROCHLORIDE
     Indication: BONE PAIN
     Dosage: 10-325 MG, QID
     Route: 048
     Dates: start: 2012
  2. FASLODEX [Concomitant]
     Active Substance: FULVESTRANT
     Indication: BREAST CANCER METASTATIC
     Dosage: 500 MG, OTHER
     Route: 030
     Dates: start: 20140128
  3. CARDIZEM CD [Concomitant]
     Active Substance: DILTIAZEM HYDROCHLORIDE
     Indication: HYPERTENSION
     Dosage: 240 MG, QD
     Route: 048
     Dates: start: 2013
  4. PROZAC [Suspect]
     Active Substance: FLUOXETINE HYDROCHLORIDE
     Indication: DEPRESSION
     Dosage: 40 MG, BID
     Route: 048
     Dates: start: 2002
  5. CLONIDINE. [Concomitant]
     Active Substance: CLONIDINE
     Indication: ANXIETY
     Dosage: 0.1 MG, BID
     Route: 048
     Dates: start: 2002
  6. ATENOLOL. [Concomitant]
     Active Substance: ATENOLOL
     Indication: HYPERTENSION
     Dosage: 50 MG, QD
     Route: 048
     Dates: start: 2013
  7. AREDIA [Concomitant]
     Active Substance: PAMIDRONATE DISODIUM
     Indication: OSTEOPOROSIS
     Dosage: 60 MG, OTHER
     Route: 042
     Dates: start: 2013
  8. FENTANYL. [Suspect]
     Active Substance: FENTANYL
     Indication: BONE PAIN
     Dosage: 25 UG, OTHER
     Route: 062
     Dates: start: 2012
  9. XANAX [Concomitant]
     Active Substance: ALPRAZOLAM
     Indication: ANXIETY
     Dosage: 0.5 MG, QID
     Route: 048
     Dates: start: 2002
  10. ZOFRAN                             /00955302/ [Concomitant]
     Indication: NAUSEA
     Dosage: 8 MG, QID
     Route: 048
     Dates: start: 2003

REACTIONS (4)
  - Gastrooesophageal reflux disease [Recovered/Resolved]
  - Vomiting [Recovered/Resolved]
  - Nausea [Recovered/Resolved]
  - Headache [Recovered/Resolved]

NARRATIVE: CASE EVENT DATE: 20141019
